FAERS Safety Report 6330947-0 (Version None)
Quarter: 2009Q3

REPORT INFORMATION
  Report Type: 
  Country: None (occurrence: None)
  Receive Date: 20090827
  Receipt Date: 20090821
  Transmission Date: 20100115
  Serious: Yes (Other)
  Sender: FDA-Public Use
  Company Number: JP-B.I. PHARMACEUTICALS,INC./RIDGEFIELD-2009-BP-10035YA

PATIENT
  Age: 72 Year
  Sex: Male

DRUGS (2)
  1. HARNAL (TAMSULOSIN) ORODISPERSABLE CR [Suspect]
     Indication: BENIGN PROSTATIC HYPERPLASIA
     Dosage: 0.2 MG
     Route: 048
     Dates: start: 20081121
  2. BLIND (SOLIFENACIN) [Suspect]
     Indication: HYPERTONIC BLADDER
     Route: 048
     Dates: start: 20090529

REACTIONS (1)
  - CEREBRAL INFARCTION [None]
